FAERS Safety Report 4606432-0 (Version None)
Quarter: 2005Q1

REPORT INFORMATION
  Report Type: 
  Country: None (occurrence: None)
  Receive Date: 20050311
  Receipt Date: 20041007
  Transmission Date: 20050727
  Serious: Yes (Life-Threatening, Hospitalization, Disabling, Other)
  Sender: FDA-Public Use
  Company Number: PL-MERCK-0410POL00004

PATIENT
  Age: 82 Year
  Sex: Female
  Weight: 105 kg

DRUGS (8)
  1. VIOXX [Suspect]
     Indication: OSTEOARTHRITIS
     Route: 048
     Dates: start: 20020701, end: 20040801
  2. CARVEDILOL [Concomitant]
     Indication: HYPERTENSION
     Route: 048
     Dates: start: 20040701
  3. PERINDOPRIL ERBUMINE [Concomitant]
     Indication: HYPERTENSION
     Route: 048
     Dates: start: 20040701
  4. ATORVASTATIN CALCIUM [Concomitant]
     Indication: HYPERCHOLESTEROLAEMIA
     Route: 048
     Dates: start: 20040401, end: 20040401
  5. DIOSMIN AND HESPERIDIN [Concomitant]
     Indication: VARICOSE VEIN
     Route: 048
     Dates: start: 20020701
  6. TRIMETAZIDINE [Concomitant]
     Indication: CORONARY ARTERY DISEASE
     Route: 048
     Dates: start: 20020101, end: 20040801
  7. METOPROLOL TARTRATE [Concomitant]
     Indication: CORONARY ARTERY DISEASE
     Route: 048
     Dates: start: 20020901, end: 20040801
  8. [THERAPY UNSPECIFIED] [Concomitant]
     Indication: INSOMNIA
     Route: 048
     Dates: start: 20040401, end: 20040801

REACTIONS (9)
  - ABDOMINAL PAIN UPPER [None]
  - ALOPECIA [None]
  - ANAEMIA HAEMOLYTIC AUTOIMMUNE [None]
  - ASTHENIA [None]
  - DYSPNOEA [None]
  - HEPATIC PAIN [None]
  - MALAISE [None]
  - OEDEMA PERIPHERAL [None]
  - VOMITING [None]
